FAERS Safety Report 9068966 (Version 3)
Quarter: 2013Q1

REPORT INFORMATION
  Report Type: Spontaneous
  Country: US (occurrence: US)
  Receive Date: 20130128
  Receipt Date: 20130225
  Transmission Date: 20140127
  Serious: Yes (Other)
  Sender: FDA-Public Use
  Company Number: PHEH2013US002164

PATIENT
  Sex: Female
  Weight: 72 kg

DRUGS (6)
  1. GILENYA [Suspect]
     Indication: MULTIPLE SCLEROSIS
     Dosage: 0.5 MG, QD
     Route: 048
     Dates: start: 20110111, end: 20120529
  2. BUPROPION HCL ER [Concomitant]
     Dosage: 150 MG, QD
     Route: 048
  3. MULTI VIT CHOICE [Concomitant]
     Dosage: 1 DF QD
     Route: 048
  4. IBUPROFEN [Concomitant]
     Dosage: 2 DF, PRN
     Route: 048
  5. VIT D3 [Concomitant]
     Dosage: 2 DF, QD
     Route: 048
  6. TYSABRI [Concomitant]

REACTIONS (15)
  - Skin cancer [Recovered/Resolved]
  - Skin lesion [Recovered/Resolved]
  - Multiple sclerosis [Unknown]
  - Fatigue [Unknown]
  - Cognitive disorder [Unknown]
  - Balance disorder [Unknown]
  - Gait disturbance [Unknown]
  - Amnesia [Unknown]
  - Asthenia [Unknown]
  - Cerebellar syndrome [Unknown]
  - Gait spastic [Unknown]
  - Urinary tract infection [Unknown]
  - Pollakiuria [Unknown]
  - Malaise [Unknown]
  - Drug ineffective [Unknown]
